FAERS Safety Report 8860467 (Version 3)
Quarter: 2013Q3

REPORT INFORMATION
  Report Type: Spontaneous
  Country: US (occurrence: US)
  Receive Date: 20121025
  Receipt Date: 20130821
  Transmission Date: 20140515
  Serious: Yes (Hospitalization)
  Sender: FDA-Public Use
  Company Number: US-BAYER-2012-108994

PATIENT
  Age: 22 Year
  Sex: Female
  Weight: 66.67 kg

DRUGS (6)
  1. YAZ [Suspect]
     Indication: CONTRACEPTION
     Dosage: UNK
     Dates: start: 200911, end: 20111220
  2. YASMIN [Suspect]
     Dosage: UNK
     Dates: start: 200911, end: 20111220
  3. CONCERTA [Concomitant]
  4. PERCOCET [Concomitant]
  5. IBUPROFEN [Concomitant]
     Dosage: UNK
     Dates: end: 20111218
  6. NSAID^S [Concomitant]

REACTIONS (4)
  - Pulmonary embolism [None]
  - Injury [None]
  - Pain [None]
  - Pain [None]
